FAERS Safety Report 9001664 (Version 2)
Quarter: 2013Q1

REPORT INFORMATION
  Report Type: Report from Study
  Country: FR (occurrence: FR)
  Receive Date: 20130107
  Receipt Date: 20130110
  Transmission Date: 20140127
  Serious: Yes (Hospitalization)
  Sender: FDA-Public Use
  Company Number: FR-ROCHE-1174264

PATIENT
  Age: 80 Year
  Sex: Female
  Weight: 68.8 kg

DRUGS (16)
  1. RITUXIMAB [Suspect]
     Route: 058
     Dates: start: 20121213
  2. BENDAMUSTINE [Suspect]
     Indication: PRODUCT USED FOR UNKNOWN INDICATION
     Route: 065
  3. FORTZAAR [Concomitant]
     Route: 065
     Dates: start: 20050815
  4. SOTALOL [Concomitant]
     Route: 065
     Dates: start: 20120815
  5. LERCAN [Concomitant]
     Route: 065
     Dates: start: 20050815
  6. PRAVASTATINE [Concomitant]
     Route: 065
     Dates: start: 2005
  7. DIAFUSOR [Concomitant]
     Route: 065
     Dates: start: 2005
  8. KARDEGIC [Concomitant]
  9. PARACETAMOL [Concomitant]
     Route: 065
     Dates: start: 20120920
  10. DEXCHLORPHENIRAMINE [Concomitant]
     Route: 065
     Dates: start: 20120920
  11. METHYLPREDNISOLONE [Concomitant]
     Route: 065
     Dates: start: 20120920
  12. INNOHEP [Concomitant]
     Dosage: 14000 UI
     Route: 065
     Dates: start: 20121213
  13. PREVISCAN [Concomitant]
     Route: 065
     Dates: start: 20121213
  14. RITUXIMAB [Suspect]
     Indication: NON-HODGKIN^S LYMPHOMA
     Route: 042
     Dates: start: 20120920, end: 20120920
  15. RITUXIMAB [Suspect]
     Route: 058
     Dates: start: 20121018, end: 20121018
  16. RITUXIMAB [Suspect]
     Dosage: EVERY 3-4 WEEKS. LAST DOSE PRIOR TO SAE ON: 13/DEC/2012
     Route: 058
     Dates: start: 20121115

REACTIONS (1)
  - Delirium [Not Recovered/Not Resolved]
